FAERS Safety Report 7392829-5 (Version None)
Quarter: 2011Q2

REPORT INFORMATION
  Report Type: 
  Country: None (occurrence: None)
  Receive Date: 20110404
  Receipt Date: 20110328
  Transmission Date: 20111010
  Serious: Yes (Other)
  Sender: FDA-Public Use
  Company Number: DE-PFIZER INC-2011037372

PATIENT
  Age: 70 Year
  Sex: Male
  Weight: 65 kg

DRUGS (14)
  1. HYDROCHLOROTHIAZIDE [Concomitant]
     Dosage: 25 ONCE DAILY
  2. ALLOPURINOL [Concomitant]
     Dosage: 100 ONCE DAILY
  3. MACROGOL [Concomitant]
     Indication: CONSTIPATION
     Dosage: SACHET ONCE DAILY
  4. HEPARIN SODIUM [Concomitant]
     Route: 058
  5. SYMBICORT [Concomitant]
     Dosage: 2 PUFFS/DAY
  6. IVABRADINE [Concomitant]
     Dosage: 5 ONCE DAILY
  7. TORASEMIDE [Concomitant]
     Dosage: 10 ONCE DAILY
  8. ATROVENT [Concomitant]
     Dosage: 250 UG/2ML 2-3X/DAY
     Route: 055
  9. IDEOS [Concomitant]
     Dosage: UNK
  10. VFEND [Suspect]
     Dosage: 200 MG, 2X/DAY
  11. OXYGEN [Concomitant]
     Dosage: UNK
     Route: 055
  12. PREDNI [Concomitant]
     Dosage: UNK
     Dates: end: 20110101
  13. RAMIPRIL [Concomitant]
     Dosage: HALF OF RAMIPRIL 2,5/DAY
  14. SPIRIVA [Concomitant]
     Dosage: 1 CAPSULE/DAY

REACTIONS (5)
  - ASTHENIA [None]
  - DIZZINESS [None]
  - HAEMORRHOIDS [None]
  - GAIT DISTURBANCE [None]
  - VESTIBULAR DISORDER [None]
